FAERS Safety Report 14248492 (Version 1)
Quarter: 2017Q4

REPORT INFORMATION
  Report Type: Spontaneous
  Country: CA (occurrence: None)
  Receive Date: 20171203
  Receipt Date: 20171203
  Transmission Date: 20180321
  Serious: Yes (Death)
  Sender: FDA-Public Use
  Company Number: None

PATIENT
  Age: 67 Year
  Sex: Male
  Weight: 108.1 kg

DRUGS (4)
  1. LOVENOX [Concomitant]
     Active Substance: ENOXAPARIN SODIUM
  2. ACETYLSALICYLIC ACID [Concomitant]
     Active Substance: ASPIRIN
  3. BENDAMUSTINE HYDROCHLORIDE. [Suspect]
     Active Substance: BENDAMUSTINE HYDROCHLORIDE
     Dates: end: 20160414
  4. RITUXIMAB (MOAB C2B8 ANTI CD 20, CHIMERIC) [Suspect]
     Active Substance: RITUXIMAB
     Dates: end: 20160415

REACTIONS (15)
  - Hypophagia [None]
  - Unresponsive to stimuli [None]
  - Hemiparesis [None]
  - Cheyne-Stokes respiration [None]
  - Nervous system disorder [None]
  - Confusional state [None]
  - Respiratory arrest [None]
  - Troponin increased [None]
  - Muscular weakness [None]
  - Pulse absent [None]
  - Pulmonary mass [None]
  - Fall [None]
  - Gait disturbance [None]
  - Motor dysfunction [None]
  - Visual field defect [None]

NARRATIVE: CASE EVENT DATE: 20170827
